FAERS Safety Report 11929723 (Version 1)
Quarter: 2016Q1

REPORT INFORMATION
  Report Type: Spontaneous
  Country: GB (occurrence: GB)
  Receive Date: 20160120
  Receipt Date: 20160120
  Transmission Date: 20160526
  Serious: Yes (Other)
  Sender: FDA-Public Use
  Company Number: GB-WATSON-2016-00214

PATIENT
  Age: 72 Year
  Sex: Female
  Weight: 71.66 kg

DRUGS (4)
  1. COCODAMOL [Concomitant]
     Active Substance: ACETAMINOPHEN\CODEINE PHOSPHATE
     Indication: PRODUCT USED FOR UNKNOWN INDICATION
     Dosage: UNK
     Route: 065
  2. PREDNISOLONE (UNKNOWN) [Suspect]
     Active Substance: PREDNISOLONE
     Indication: INFLAMMATION
     Dosage: 60 MG, UNKNOWN (BEGAN ON 60MGS AND NOW ON 30MGS)
     Route: 048
     Dates: start: 20151009
  3. PREDNISOLONE (UNKNOWN) [Suspect]
     Active Substance: PREDNISOLONE
     Dosage: 30 MG, UNKNOWN (BEGAN ON 60MGS AND NOW ON 30MGS)
     Route: 048
  4. PREDNISOLONE (UNKNOWN) [Suspect]
     Active Substance: PREDNISOLONE
     Dosage: 15 MG, UNKNOWN (REDUCTION TO 15MGS)
     Route: 048

REACTIONS (17)
  - Flat affect [Not Recovered/Not Resolved]
  - Ocular discomfort [Not Recovered/Not Resolved]
  - Aggression [Not Recovered/Not Resolved]
  - Anger [Not Recovered/Not Resolved]
  - Confusional state [Not Recovered/Not Resolved]
  - Psychiatric symptom [Not Recovered/Not Resolved]
  - Irritability [Not Recovered/Not Resolved]
  - Vision blurred [Not Recovered/Not Resolved]
  - Head discomfort [Not Recovered/Not Resolved]
  - Tearfulness [Not Recovered/Not Resolved]
  - Depressed mood [Not Recovered/Not Resolved]
  - Impulsive behaviour [Not Recovered/Not Resolved]
  - Euphoric mood [Not Recovered/Not Resolved]
  - Stress [Not Recovered/Not Resolved]
  - Energy increased [Not Recovered/Not Resolved]
  - Memory impairment [Not Recovered/Not Resolved]
  - Personality change [Not Recovered/Not Resolved]

NARRATIVE: CASE EVENT DATE: 20151009
